FAERS Safety Report 4567790-9 (Version None)
Quarter: 2005Q1

REPORT INFORMATION
  Report Type: 
  Country: None (occurrence: None)
  Receive Date: 20050128
  Receipt Date: 20041026
  Transmission Date: 20050727
  Serious: Yes (Hospitalization, Other)
  Sender: FDA-Public Use
  Company Number: GXKR2004US00662

PATIENT
  Age: 4 Year
  Sex: Female
  Weight: 12.8 kg

DRUGS (3)
  1. FLUOXETINE [Suspect]
     Indication: ANXIETY
     Dosage: 5 MG, QD, ORAL
     Route: 048
  2. LINEZOLID (LINEZOLID) [Suspect]
     Dosage: 140 MG, BID, ORAL
     Route: 048
  3. FENTANYL [Concomitant]

REACTIONS (7)
  - AGITATION [None]
  - DRUG INTERACTION [None]
  - GAZE PALSY [None]
  - MYDRIASIS [None]
  - MYOCLONIC EPILEPSY [None]
  - NYSTAGMUS [None]
  - SEROTONIN SYNDROME [None]
